FAERS Safety Report 14655258 (Version 1)
Quarter: 2018Q1

REPORT INFORMATION
  Report Type: Spontaneous
  Country: JP (occurrence: JP)
  Receive Date: 20180319
  Receipt Date: 20180319
  Transmission Date: 20180509
  Serious: Yes (Hospitalization)
  Sender: FDA-Public Use
  Company Number: JP-EISAI MEDICAL RESEARCH-EC-2017-032588

PATIENT
  Age: 69 Year
  Sex: Female

DRUGS (5)
  1. LENVIMA [Suspect]
     Active Substance: LENVATINIB
     Route: 048
     Dates: start: 20171205, end: 20171218
  2. LENVIMA [Suspect]
     Active Substance: LENVATINIB
     Route: 048
     Dates: start: 20171219, end: 201803
  3. LENVIMA [Suspect]
     Active Substance: LENVATINIB
     Route: 048
     Dates: start: 20171024, end: 2017
  4. LENVIMA [Suspect]
     Active Substance: LENVATINIB
     Indication: PAPILLARY THYROID CANCER
     Route: 048
     Dates: start: 20171020, end: 20171023
  5. LENVIMA [Suspect]
     Active Substance: LENVATINIB
     Dates: start: 20180313, end: 20180315

REACTIONS (3)
  - Cerebral haemorrhage [Recovered/Resolved]
  - Hypertension [Recovering/Resolving]
  - Proteinuria [Unknown]

NARRATIVE: CASE EVENT DATE: 201710
